FAERS Safety Report 23054951 (Version 2)
Quarter: 2023Q4

REPORT INFORMATION
  Report Type: Report from Study
  Country: CL (occurrence: CL)
  Receive Date: 20231011
  Receipt Date: 20231113
  Transmission Date: 20240109
  Serious: Yes (Hospitalization)
  Sender: FDA-Public Use
  Company Number: CL-Eisai Medical Research-EC-2023-136307

PATIENT
  Age: 58 Year
  Sex: Male
  Weight: 74.0 kg

DRUGS (19)
  1. LENVATINIB [Suspect]
     Active Substance: LENVATINIB
     Indication: Hepatocellular carcinoma
     Dosage: STARTING DOSE AT 12 MILLIGRAM, FLUCTUATED DOSAGE
     Route: 048
     Dates: start: 20220324, end: 20230308
  2. PEMBROLIZUMAB [Suspect]
     Active Substance: PEMBROLIZUMAB
     Indication: Hepatocellular carcinoma
     Dosage: VIBOSTOLIMAB 200 MG + PEMBROLIZUMAB 200 MG
     Route: 042
     Dates: start: 20220324, end: 20230216
  3. INSULIN HUMAN [Concomitant]
     Active Substance: INSULIN HUMAN
     Dates: start: 201401
  4. INSULIN HUMAN [Concomitant]
     Active Substance: INSULIN HUMAN
     Dates: start: 20140101
  5. PREDNISONE [Concomitant]
     Active Substance: PREDNISONE
     Dates: start: 20220613, end: 20230327
  6. ACETAMINOPHEN [Concomitant]
     Active Substance: ACETAMINOPHEN
     Dates: start: 20220321
  7. FEXOFENADINE HYDROCHLORIDE [Concomitant]
     Active Substance: FEXOFENADINE HYDROCHLORIDE
     Dates: start: 20220725
  8. MOMETASONE FUROATE [Concomitant]
     Active Substance: MOMETASONE FUROATE
     Dates: start: 20220926
  9. TERBINAFINE HYDROCHLORIDE [Concomitant]
     Active Substance: TERBINAFINE HYDROCHLORIDE
     Dates: start: 20221214
  10. CORTISONE [Concomitant]
     Active Substance: CORTISONE
     Dates: start: 20221214
  11. AMLODIPINE [Concomitant]
     Active Substance: AMLODIPINE BESYLATE
     Dates: start: 20220725
  12. TERBINAFINE [Concomitant]
     Active Substance: TERBINAFINE
     Dates: start: 20221214
  13. HYDROCORTISONE [Concomitant]
     Active Substance: HYDROCORTISONE
     Dates: start: 20221214
  14. VALSARTAN [Concomitant]
     Active Substance: VALSARTAN
     Dates: start: 20230215
  15. PROPRANOLOL [Concomitant]
     Active Substance: PROPRANOLOL HYDROCHLORIDE
     Dates: start: 201401
  16. SPIRONOLACTONE [Concomitant]
     Active Substance: SPIRONOLACTONE
     Dates: start: 201901
  17. ATORVASTATIN [Concomitant]
     Active Substance: ATORVASTATIN
     Dates: start: 201401
  18. UREA [Concomitant]
     Active Substance: UREA
     Dates: start: 20220413
  19. VIBOSTOLIMAB [Suspect]
     Active Substance: VIBOSTOLIMAB

REACTIONS (1)
  - Haemoperitoneum [Recovered/Resolved]

NARRATIVE: CASE EVENT DATE: 20230309
